FAERS Safety Report 14581742 (Version 1)
Quarter: 2018Q1

REPORT INFORMATION
  Report Type: Spontaneous
  Country: US (occurrence: US)
  Receive Date: 20180227
  Receipt Date: 20180227
  Transmission Date: 20180509
  Serious: Yes (Other)
  Sender: FDA-Public Use
  Company Number: None

PATIENT
  Age: 31 Year
  Sex: Female
  Weight: 67 kg

DRUGS (1)
  1. COPPER IUD [Suspect]
     Active Substance: COPPER

REACTIONS (10)
  - Fatigue [None]
  - Pain [None]
  - Motion sickness [None]
  - Stress [None]
  - Alopecia [None]
  - Dizziness [None]
  - Anxiety [None]
  - Eczema [None]
  - Feeling abnormal [None]
  - Skin disorder [None]

NARRATIVE: CASE EVENT DATE: 20150505
